FAERS Safety Report 13603301 (Version 1)
Quarter: 2017Q2

REPORT INFORMATION
  Report Type: Spontaneous
  Country: PE (occurrence: PE)
  Receive Date: 20170601
  Receipt Date: 20170601
  Transmission Date: 20170830
  Serious: Yes (Death)
  Sender: FDA-Public Use
  Company Number: PE-PFIZER INC-2016435776

PATIENT
  Age: 48 Year
  Sex: Male

DRUGS (1)
  1. ZELDOX [Suspect]
     Active Substance: ZIPRASIDONE
     Dosage: 180 MG, DAILY (3 CAPSULES OF 60 MG)

REACTIONS (2)
  - Infarction [Fatal]
  - Overdose [Unknown]

NARRATIVE: CASE EVENT DATE: 20141014
